FAERS Safety Report 10075633 (Version 1)
Quarter: 2014Q2

REPORT INFORMATION
  Report Type: Spontaneous
  Country: US (occurrence: None)
  Receive Date: 20140411
  Receipt Date: 20140411
  Transmission Date: 20141212
  Serious: Yes (Hospitalization)
  Sender: FDA-Public Use
  Company Number: None

PATIENT
  Age: 80 Year
  Sex: Female

DRUGS (10)
  1. AFLIBERCEPT [Suspect]
     Indication: AGE-RELATED MACULAR DEGENERATION
     Dates: start: 20120919, end: 20140214
  2. METOPROLOL [Concomitant]
  3. NIFEDIPINE [Concomitant]
  4. TYLENOL [Concomitant]
  5. MULTIVITAMIN [Concomitant]
  6. VITAMIN E [Concomitant]
  7. MELOXICAM [Concomitant]
  8. PAROXETINE HCL [Concomitant]
  9. DETROL LA [Concomitant]
  10. I CAPS [Concomitant]

REACTIONS (4)
  - Atrial fibrillation [None]
  - Palpitations [None]
  - Nausea [None]
  - Dizziness [None]
